FAERS Safety Report 10929031 (Version 2)
Quarter: 2015Q4

REPORT INFORMATION
  Report Type: Spontaneous
  Country: US (occurrence: US)
  Receive Date: 20150319
  Receipt Date: 20151103
  Transmission Date: 20160304
  Serious: Yes (Death, Hospitalization, Other)
  Sender: FDA-Public Use
  Company Number: US-009507513-1503USA008853

PATIENT
  Sex: Male
  Weight: 85 kg

DRUGS (1)
  1. JANUMET [Suspect]
     Active Substance: METFORMIN HYDROCHLORIDE\SITAGLIPTIN PHOSPHATE
     Indication: TYPE 2 DIABETES MELLITUS
     Dosage: 50MG/1000MG BID
     Route: 048
     Dates: start: 20090212, end: 20130214

REACTIONS (5)
  - Pancreatic carcinoma [Fatal]
  - Emotional distress [Unknown]
  - Carpal tunnel syndrome [Unknown]
  - Hepatic cancer [Unknown]
  - Pancreatitis [Unknown]

NARRATIVE: CASE EVENT DATE: 2012
